FAERS Safety Report 25373180 (Version 2)
Quarter: 2025Q3

REPORT INFORMATION
  Report Type: Spontaneous
  Country: US (occurrence: US)
  Receive Date: 20250529
  Receipt Date: 20250703
  Transmission Date: 20251020
  Serious: No
  Sender: CIPLA
  Company Number: US-CIPLA LTD.-2024US10770

PATIENT

DRUGS (4)
  1. ALBUTEROL [Suspect]
     Active Substance: ALBUTEROL
     Indication: Cystic fibrosis
     Route: 065
  2. ALBUTEROL [Suspect]
     Active Substance: ALBUTEROL
     Route: 065
  3. ALBUTEROL [Suspect]
     Active Substance: ALBUTEROL
     Route: 065
     Dates: start: 2024
  4. SYMBICORT [Concomitant]
     Active Substance: BUDESONIDE\FORMOTEROL FUMARATE DIHYDRATE
     Indication: Cystic fibrosis
     Route: 065

REACTIONS (6)
  - Drug dose omission by device [Unknown]
  - Product dose omission issue [Unknown]
  - Wrong technique in product usage process [Unknown]
  - Device delivery system issue [Unknown]
  - Product quality issue [Unknown]
  - Off label use [Unknown]
